FAERS Safety Report 10208003 (Version 1)
Quarter: 2014Q2

REPORT INFORMATION
  Report Type: Spontaneous
  Country: US (occurrence: None)
  Receive Date: 20140528
  Receipt Date: 20140528
  Transmission Date: 20141212
  Serious: Yes (Hospitalization)
  Sender: FDA-Public Use
  Company Number: None

PATIENT
  Age: 81 Year
  Sex: Male

DRUGS (1)
  1. NEXAVAR 200MG BEYER [Suspect]
     Indication: HEPATIC CANCER
     Route: 048
     Dates: start: 20140417

REACTIONS (1)
  - Renal disorder [None]
